FAERS Safety Report 5488450-6 (Version None)
Quarter: 2007Q4

REPORT INFORMATION
  Report Type: 
  Country: None (occurrence: None)
  Receive Date: 20071017
  Receipt Date: 20071012
  Transmission Date: 20080405
  Serious: Yes (Other)
  Sender: FDA-Public Use
  Company Number: CA-ASTRAZENECA-2007UW23828

PATIENT
  Age: 39 Year
  Sex: Male

DRUGS (6)
  1. CRESTOR [Suspect]
     Route: 048
  2. ALTI-SULFASALAZINE [Concomitant]
  3. CENTRUM [Concomitant]
  4. PREBIATIC [Concomitant]
  5. SALOFALK [Concomitant]
  6. VITAMIN B-12 [Concomitant]

REACTIONS (5)
  - ARTHRALGIA [None]
  - GAIT DISTURBANCE [None]
  - MUSCULOSKELETAL STIFFNESS [None]
  - OSTEONECROSIS [None]
  - PAIN IN EXTREMITY [None]
